FAERS Safety Report 25396532 (Version 1)
Quarter: 2025Q2

REPORT INFORMATION
  Report Type: Spontaneous
  Country: US (occurrence: None)
  Receive Date: 20250603
  Receipt Date: 20250603
  Transmission Date: 20250717
  Serious: No
  Sender: FDA-CTU
  Company Number: None

PATIENT
  Age: 39 Year
  Sex: Female
  Weight: 60.3 kg

DRUGS (7)
  1. ACETYLCYSTEINE [Suspect]
     Active Substance: ACETYLCYSTEINE
     Dosage: FREQUENCY : DAILY;?
     Route: 048
  2. GUANFACINE [Concomitant]
     Active Substance: GUANFACINE
     Dosage: FREQUENCY : TWICE A DAY;?
     Route: 048
  3. CLONIDINE [Concomitant]
     Active Substance: CLONIDINE
  4. LORAZEPAM [Concomitant]
     Active Substance: LORAZEPAM
  5. VITAMINS [Concomitant]
     Active Substance: VITAMINS
  6. PROBIOTICS NOS [Concomitant]
     Active Substance: PROBIOTICS NOS
  7. FISH OIL [Concomitant]
     Active Substance: FISH OIL

REACTIONS (3)
  - Anxiety [None]
  - Dizziness [None]
  - Night sweats [None]

NARRATIVE: CASE EVENT DATE: 20250430
